FAERS Safety Report 8052035-8 (Version None)
Quarter: 2012Q1

REPORT INFORMATION
  Report Type: 
  Country: None (occurrence: None)
  Receive Date: 20120118
  Receipt Date: 20120109
  Transmission Date: 20120608
  Serious: Yes (Hospitalization)
  Sender: FDA-Public Use
  Company Number: US-BAYER-2010-001120

PATIENT
  Sex: Female
  Weight: 95.238 kg

DRUGS (9)
  1. YAZ [Suspect]
     Indication: CONTRACEPTION
     Dosage: UNK
     Dates: start: 20060501, end: 20061101
  2. ZYRTEC [Concomitant]
     Dosage: 10 MG, UNK
     Route: 048
     Dates: start: 20060830, end: 20061028
  3. ACETAMINOPHEN W/ CODEINE [Concomitant]
     Dosage: UNK
     Route: 048
     Dates: start: 20071027
  4. EXTENDRYL PSE [Concomitant]
     Dosage: UNK
     Route: 048
     Dates: start: 20061027
  5. YASMIN [Suspect]
     Indication: CONTRACEPTION
     Dosage: UNK
     Dates: start: 20060501, end: 20061101
  6. DICLOFENAC SODIUM [Concomitant]
     Dosage: 75 MG, UNK
     Route: 048
     Dates: start: 20061027, end: 20061115
  7. AMOXICILLIN TRIHYDRATE W/CLAVULANTE POTASSIUM [Concomitant]
     Dosage: 875-125 MG
     Route: 048
     Dates: start: 20061027
  8. LAMISIL [Concomitant]
     Dosage: 250 MG, UNK
     Route: 048
     Dates: start: 20060814
  9. ACETAMINOPHEN W/ CODEINE [Concomitant]
     Dosage: UNK
     Route: 048
     Dates: start: 20061030

REACTIONS (2)
  - PULMONARY EMBOLISM [None]
  - INJURY [None]
